FAERS Safety Report 11663378 (Version 2)
Quarter: 2015Q4

REPORT INFORMATION
  Report Type: Spontaneous
  Country: JP (occurrence: JP)
  Receive Date: 20151027
  Receipt Date: 20151103
  Transmission Date: 20160304
  Serious: Yes (Death, Hospitalization, Other)
  Sender: FDA-Public Use
  Company Number: JP-009507513-1510JPN011548

PATIENT
  Age: 76 Year
  Sex: Male

DRUGS (2)
  1. DOCETAXEL. [Suspect]
     Active Substance: DOCETAXEL
     Indication: PROSTATE CANCER
     Dosage: 50 MG/ M2, EVERY 3 WEEKS
     Route: 065
     Dates: start: 201309
  2. DEXAMETHASONE ACETATE [Suspect]
     Active Substance: DEXAMETHASONE ACETATE
     Indication: PROSTATE CANCER
     Dosage: DAILY DOSE: 1 MG ( 1 MG, 1 IN 1 D)
     Route: 065
     Dates: start: 201309

REACTIONS (3)
  - Pneumocystis jirovecii pneumonia [Not Recovered/Not Resolved]
  - Off label use [Unknown]
  - Respiratory failure [Fatal]

NARRATIVE: CASE EVENT DATE: 201312
